FAERS Safety Report 9674881 (Version 3)
Quarter: 2013Q4

REPORT INFORMATION
  Report Type: Spontaneous
  Country: GB (occurrence: GB)
  Receive Date: 20131107
  Receipt Date: 20131224
  Transmission Date: 20140711
  Serious: Yes (Hospitalization, Other)
  Sender: FDA-Public Use
  Company Number: PHFR2013GB005858

PATIENT
  Age: 30 Year
  Sex: Male
  Weight: 94 kg

DRUGS (4)
  1. CLOZARIL [Suspect]
     Indication: SCHIZOPHRENIA
     Dosage: UNK
     Route: 048
     Dates: start: 20110720
  2. CLOZARIL [Suspect]
     Dosage: 600 MG, DAILY
     Route: 048
     Dates: start: 20130626, end: 20131011
  3. ESCITALOPRAM [Concomitant]
     Dosage: 20 MG, DAILY
     Route: 048
  4. PREGABALIN [Concomitant]
     Dosage: 200 MG, UNK
     Route: 048
     Dates: start: 20130424

REACTIONS (6)
  - Hepatitis acute [Recovered/Resolved]
  - Liver function test abnormal [Recovered/Resolved]
  - Blood bilirubin increased [Recovered/Resolved]
  - Malaise [Unknown]
  - Abdominal pain upper [Unknown]
  - Vomiting [Unknown]
